FAERS Safety Report 12846538 (Version 2)
Quarter: 2016Q4

REPORT INFORMATION
  Report Type: Spontaneous
  Country: US (occurrence: US)
  Receive Date: 20161014
  Receipt Date: 20161021
  Transmission Date: 20170207
  Serious: No
  Sender: FDA-Public Use
  Company Number: US-HORIZON-RAV-0202-2016

PATIENT
  Age: 6 Year
  Sex: Male

DRUGS (1)
  1. RAVICTI [Suspect]
     Active Substance: GLYCEROL PHENYLBUTYRATE
     Indication: UREA CYCLE ENZYME DEFICIENCY
     Dosage: 2.5 ML TID
     Dates: start: 20160726

REACTIONS (1)
  - Lethargy [Unknown]

NARRATIVE: CASE EVENT DATE: 20160926
